FAERS Safety Report 7244040-6 (Version None)
Quarter: 2011Q1

REPORT INFORMATION
  Report Type: 
  Country: None (occurrence: None)
  Receive Date: 20110125
  Receipt Date: 20110111
  Transmission Date: 20110831
  Serious: Yes (Hospitalization, Other)
  Sender: FDA-Public Use
  Company Number: US-ELI_LILLY_AND_COMPANY-US201008003865

PATIENT
  Sex: Female

DRUGS (14)
  1. DORZOLAMIDE [Concomitant]
     Dosage: UNK, 2/D
  2. OXYCODONE HCL AND ACETAMINOPHEN [Concomitant]
     Dosage: UNK, AS NEEDED
  3. MULTI-VITAMIN [Concomitant]
     Dosage: UNK, DAILY (1/D)
     Route: 048
  4. MEGESTROL ACETATE [Concomitant]
     Dosage: 40 MG, DAILY (1/D)
  5. FORTEO [Suspect]
     Indication: OSTEOPOROSIS
     Dosage: 20 UG, DAILY (1/D)
  6. VITAMIN D [Concomitant]
     Dosage: 50000 U, WEEKLY (1/W)
     Dates: start: 20100429
  7. AMITRIPTYLINE [Concomitant]
     Dosage: 50 MG, EACH EVENING
     Dates: start: 20100610
  8. VICODIN [Concomitant]
     Indication: PAIN
     Dates: start: 20100429
  9. BUSPIRONE [Concomitant]
     Dosage: 5 MG, DAILY (1/D)
  10. TRAVATAN [Concomitant]
     Dosage: UNK, DAILY (1/D)
  11. FEMARA [Concomitant]
     Dosage: 2.5 MG, DAILY (1/D)
     Dates: start: 20090522
  12. CALCIUM [Concomitant]
     Dosage: 600 MG, UNK
     Dates: start: 20060815
  13. FLUOXETINE [Concomitant]
     Dosage: 20 UG, DAILY (1/D)
  14. SERTRALINE [Concomitant]
     Dosage: 25 MG, DAILY (1/D)

REACTIONS (9)
  - SURGERY [None]
  - BLINDNESS [None]
  - BACK PAIN [None]
  - SUBDURAL HAEMATOMA [None]
  - FALL [None]
  - VISUAL ACUITY REDUCED [None]
  - HEADACHE [None]
  - INJECTION SITE PAIN [None]
  - ARTHRALGIA [None]
